FAERS Safety Report 10095041 (Version 1)
Quarter: 2014Q2

REPORT INFORMATION
  Report Type: Spontaneous
  Country: US (occurrence: US)
  Receive Date: 20140422
  Receipt Date: 20140422
  Transmission Date: 20141212
  Serious: No
  Sender: FDA-Public Use
  Company Number: US-GILEAD-2014-0100346

PATIENT
  Age: 44 Year
  Sex: Female

DRUGS (10)
  1. LETAIRIS [Suspect]
     Indication: PULMONARY ARTERIAL HYPERTENSION
     Dosage: 10 MG, QD
     Route: 065
     Dates: start: 20140319
  2. LETAIRIS [Suspect]
     Dosage: 5 MG, QD
     Route: 065
  3. BUMETANIDE [Concomitant]
  4. KLOR-CON [Concomitant]
  5. SPIRONOLACTONE [Concomitant]
  6. REVATIO [Concomitant]
  7. SERTRALINE [Concomitant]
  8. PRILOSEC                           /00661201/ [Concomitant]
  9. ZOFRAN                             /00955301/ [Concomitant]
  10. CLONAZEPAM [Concomitant]

REACTIONS (2)
  - Migraine [Not Recovered/Not Resolved]
  - Oedema [Recovered/Resolved]
